FAERS Safety Report 12519837 (Version 1)
Quarter: 2016Q2

REPORT INFORMATION
  Report Type: Spontaneous
  Country: JP (occurrence: JP)
  Receive Date: 20160630
  Receipt Date: 20160630
  Transmission Date: 20160815
  Serious: Yes (Hospitalization)
  Sender: FDA-Public Use
  Company Number: JP-PFIZER INC-2016312459

PATIENT
  Age: 72 Year
  Sex: Male
  Weight: 48 kg

DRUGS (2)
  1. DOXAZOSIN MESILATE [Suspect]
     Active Substance: DOXAZOSIN MESYLATE
     Dosage: 4 MG, UNK (IN THE MORNING ON THE DAY OF SURGERY)
     Route: 048
  2. DOXAZOSIN MESILATE [Suspect]
     Active Substance: DOXAZOSIN MESYLATE
     Dosage: 12 MG, DAILY

REACTIONS (2)
  - Hypotension [Recovered/Resolved]
  - Circulatory collapse [Recovered/Resolved]
